FAERS Safety Report 18263056 (Version 1)
Quarter: 2020Q3

REPORT INFORMATION
  Report Type: Spontaneous
  Country: US (occurrence: US)
  Receive Date: 20200914
  Receipt Date: 20200914
  Transmission Date: 20201103
  Serious: Yes (Other)
  Sender: FDA-Public Use
  Company Number: None

PATIENT
  Age: 70 Year
  Sex: Female
  Weight: 60.75 kg

DRUGS (2)
  1. ZOLEDRONIC ACID [Suspect]
     Active Substance: ZOLEDRONIC ACID
     Indication: OSTEOPOROSIS
     Route: 042
     Dates: start: 20200910, end: 20200910
  2. C;ONAZEPAM [Concomitant]

REACTIONS (14)
  - Chest pain [None]
  - Nausea [None]
  - Muscle spasms [None]
  - Back pain [None]
  - Infusion related reaction [None]
  - Headache [None]
  - Tremor [None]
  - Dizziness [None]
  - Feeling cold [None]
  - Bone pain [None]
  - Myalgia [None]
  - Pain in extremity [None]
  - Feeding disorder [None]
  - Neck pain [None]

NARRATIVE: CASE EVENT DATE: 20200910
